FAERS Safety Report 4740634-8 (Version None)
Quarter: 2005Q3

REPORT INFORMATION
  Report Type: 
  Country: None (occurrence: None)
  Receive Date: 20050801
  Receipt Date: 20050323
  Transmission Date: 20060218
  Serious: No
  Sender: FDA-Public Use
  Company Number: 800319

PATIENT
  Age: 57 Year
  Sex: Male

DRUGS (19)
  1. EXTRANEAL [Suspect]
     Indication: RENAL FAILURE CHRONIC
     Dosage: 2.5 L;RENAL FAILURE
     Dates: start: 20050316
  2. LOPRESSOR [Concomitant]
  3. NORVASC [Concomitant]
  4. MINOXIDIL [Concomitant]
  5. IMDUR [Concomitant]
  6. CLONIDINE [Concomitant]
  7. LIPITOR [Concomitant]
  8. PLAVIX [Concomitant]
  9. ASPIRIN [Concomitant]
  10. PHOSLO [Concomitant]
  11. POTASSIUM CHLORIDE [Concomitant]
  12. NITROGLYCERIN [Concomitant]
  13. SENOKOT [Concomitant]
  14. PTOTONIX [Concomitant]
  15. PROCRIT [Concomitant]
  16. MULTI-VITAMINS [Concomitant]
  17. VITAMIN D [Concomitant]
  18. CIPROFLOXACIN HCL [Concomitant]
  19. LEVAQUIN [Concomitant]

REACTIONS (2)
  - RASH ERYTHEMATOUS [None]
  - RASH MACULAR [None]
